FAERS Safety Report 25352995 (Version 1)
Quarter: 2025Q2

REPORT INFORMATION
  Report Type: Spontaneous
  Country: CN (occurrence: CN)
  Receive Date: 20250523
  Receipt Date: 20250523
  Transmission Date: 20250716
  Serious: Yes (Hospitalization, Other)
  Sender: PFIZER
  Company Number: CN-PFIZER INC-PV202500060619

PATIENT
  Age: 36 Year
  Sex: Female
  Weight: 65.6 kg

DRUGS (12)
  1. EPIRUBICIN [Suspect]
     Active Substance: EPIRUBICIN
     Indication: Breast cancer
     Dosage: 145 MG, 1X/DAY
     Route: 041
     Dates: start: 20250508, end: 20250508
  2. CYCLOPHOSPHAMIDE [Suspect]
     Active Substance: CYCLOPHOSPHAMIDE
     Indication: Breast cancer
     Dosage: 0.9 G, 1X/DAY
     Route: 041
     Dates: start: 20250508, end: 20250508
  3. SODIUM CHLORIDE [Concomitant]
     Active Substance: SODIUM CHLORIDE
     Indication: Vehicle solution use
     Route: 040
     Dates: start: 20250508, end: 20250508
  4. SODIUM CHLORIDE [Concomitant]
     Active Substance: SODIUM CHLORIDE
     Dosage: 100 ML, 1X/DAY
     Route: 041
     Dates: start: 20250508, end: 20250508
  5. SODIUM CHLORIDE [Concomitant]
     Active Substance: SODIUM CHLORIDE
     Dosage: 100 ML, 1X/DAY
     Route: 041
     Dates: start: 20250508, end: 20250508
  6. SODIUM CHLORIDE [Concomitant]
     Active Substance: SODIUM CHLORIDE
     Route: 040
     Dates: start: 20250508, end: 20250508
  7. SODIUM CHLORIDE [Concomitant]
     Active Substance: SODIUM CHLORIDE
     Route: 041
     Dates: start: 20250508, end: 20250508
  8. SODIUM CHLORIDE [Concomitant]
     Active Substance: SODIUM CHLORIDE
     Route: 041
     Dates: start: 20250509, end: 20250509
  9. DEXAMETHASONE SODIUM PHOSPHATE [Concomitant]
     Active Substance: DEXAMETHASONE SODIUM PHOSPHATE
     Indication: Prophylaxis
     Dates: start: 20250508, end: 20250508
  10. TROPISETRON HYDROCHLORIDE [Concomitant]
     Active Substance: TROPISETRON HYDROCHLORIDE
     Indication: Prophylaxis
     Route: 040
     Dates: start: 20250508, end: 20250508
  11. TROPISETRON HYDROCHLORIDE [Concomitant]
     Active Substance: TROPISETRON HYDROCHLORIDE
     Route: 040
     Dates: start: 20250508, end: 20250508
  12. OMEPRAZOLE SODIUM [Concomitant]
     Active Substance: OMEPRAZOLE SODIUM
     Indication: Prophylaxis
     Route: 041
     Dates: start: 20250508, end: 20250509

REACTIONS (10)
  - Anaemia [Recovering/Resolving]
  - Neuropathy peripheral [Recovering/Resolving]
  - Decreased appetite [Recovering/Resolving]
  - Chest discomfort [Recovering/Resolving]
  - Asthenia [Recovering/Resolving]
  - Abdominal pain [Recovering/Resolving]
  - Dizziness [Recovering/Resolving]
  - White blood cell count decreased [Recovering/Resolving]
  - Neutrophil count decreased [Recovering/Resolving]
  - Upper respiratory tract infection [Recovering/Resolving]

NARRATIVE: CASE EVENT DATE: 20250509
